FAERS Safety Report 20635775 (Version 1)
Quarter: 2022Q1

REPORT INFORMATION
  Report Type: Report from Study
  Country: FR (occurrence: None)
  Receive Date: 20220325
  Receipt Date: 20220325
  Transmission Date: 20220424
  Serious: No
  Sender: FDA-Public Use
  Company Number: FR-Spark Therapeutics, Inc.-FR-SPK-21-00035

PATIENT
  Age: 13 Year
  Sex: Male

DRUGS (4)
  1. VORETIGENE NEPARVOVEC [Suspect]
     Active Substance: VORETIGENE NEPARVOVEC
     Indication: Retinal dystrophy
     Dosage: 1 INJECTION OF 0.5ML
     Dates: start: 20190911, end: 20190911
  2. VORETIGENE NEPARVOVEC [Suspect]
     Active Substance: VORETIGENE NEPARVOVEC
     Indication: RPE65 gene mutation
     Dates: start: 20190930, end: 20190930
  3. VORETIGENE NEPARVOVEC [Suspect]
     Active Substance: VORETIGENE NEPARVOVEC
     Indication: Retinal dystrophy
     Dates: start: 20190911, end: 20190911
  4. VORETIGENE NEPARVOVEC [Suspect]
     Active Substance: VORETIGENE NEPARVOVEC
     Indication: RPE65 gene mutation
     Dates: start: 20190930, end: 20190930

REACTIONS (4)
  - Visual acuity reduced [Recovered/Resolved]
  - Visual acuity reduced [Not Recovered/Not Resolved]
  - Headache [Recovered/Resolved]
  - Injection site atrophy [Recovering/Resolving]

NARRATIVE: CASE EVENT DATE: 20190901
